FAERS Safety Report 16980003 (Version 3)
Quarter: 2019Q4

REPORT INFORMATION
  Report Type: Spontaneous
  Country: ES (occurrence: ES)
  Receive Date: 20191031
  Receipt Date: 20191204
  Transmission Date: 20200122
  Serious: Yes (Hospitalization)
  Sender: FDA-Public Use
  Company Number: ES-PFIZER INC-2019464355

PATIENT
  Age: 74 Year
  Sex: Female

DRUGS (14)
  1. TAXOL [Concomitant]
     Active Substance: PACLITAXEL
     Indication: HER-2 POSITIVE BREAST CANCER
     Dosage: 120 MG, WEEKLY
     Route: 065
     Dates: start: 20130531
  2. TARGIN [Concomitant]
     Active Substance: NALOXONE HYDROCHLORIDE\OXYCODONE HYDROCHLORIDE
     Dosage: 10/5 MG/MG
     Route: 065
     Dates: start: 20130529
  3. BEMIPARIN [Concomitant]
     Active Substance: BEMIPARIN
     Dosage: UNK
     Route: 065
     Dates: start: 20130525, end: 20130530
  4. FENTANYL. [Concomitant]
     Active Substance: FENTANYL
     Dosage: UNK
     Route: 065
     Dates: start: 20130528, end: 20130528
  5. ATACAND PLUS [Concomitant]
     Active Substance: CANDESARTAN CILEXETIL\HYDROCHLOROTHIAZIDE
     Dosage: 16/12.5 MG
     Route: 065
  6. TARGIN [Concomitant]
     Active Substance: NALOXONE HYDROCHLORIDE\OXYCODONE HYDROCHLORIDE
     Dosage: 10/5 MG/MG
     Route: 065
     Dates: start: 20130524, end: 20130531
  7. CODEINE [Concomitant]
     Active Substance: CODEINE
     Dosage: 3 DF, UNK
     Route: 065
  8. OMEPRAZOLE. [Concomitant]
     Active Substance: OMEPRAZOLE
     Dosage: UNK
     Route: 065
  9. METFORMIN [Concomitant]
     Active Substance: METFORMIN HYDROCHLORIDE
     Dosage: UNK
     Route: 065
  10. PERTUZUMAB. [Suspect]
     Active Substance: PERTUZUMAB
     Indication: HER-2 POSITIVE BREAST CANCER
     Dosage: 840 MG, EVERY 3 WEEKS (DATE OF LAST DOSE PRIOR TO SAE WAS ON 23MAY2013. LOADING DOSE.)
     Route: 041
     Dates: start: 20130523, end: 20130618
  11. ACTOCORTIN [HYDROCORTISONE SODIUM PHOSPHATE] [Concomitant]
     Active Substance: HYDROCORTISONE SODIUM PHOSPHATE
     Dosage: 100 MG, UNK
     Route: 065
     Dates: start: 20130524, end: 20130531
  12. TRASTUZUMAB. [Suspect]
     Active Substance: TRASTUZUMAB
     Indication: HER-2 POSITIVE BREAST CANCER
     Dosage: 8 MG/KG, EVERY 3 WEEKS (LAST DOSE PRIOR TO SAE WAS ON 24MAY2013)
     Route: 042
     Dates: start: 20130524, end: 20130618
  13. LORAZEPAM. [Concomitant]
     Active Substance: LORAZEPAM
     Dosage: UNK
     Route: 065
     Dates: start: 20130524, end: 20130530
  14. DEXKETOPROFEN [Concomitant]
     Active Substance: DEXKETOPROFEN
     Dosage: UNK
     Route: 065
     Dates: start: 20130523

REACTIONS (4)
  - Haemoglobin decreased [Unknown]
  - Respiratory failure [Recovered/Resolved]
  - Infusion related reaction [Recovered/Resolved]
  - Procalcitonin increased [Unknown]

NARRATIVE: CASE EVENT DATE: 20130524
